FAERS Safety Report 10761607 (Version 1)
Quarter: 2015Q1

REPORT INFORMATION
  Report Type: Spontaneous
  Country: US (occurrence: None)
  Receive Date: 20150203
  Receipt Date: 20150203
  Transmission Date: 20150721
  Serious: Yes (Hospitalization)
  Sender: FDA-Public Use
  Company Number: None

PATIENT
  Age: 67 Year
  Sex: Male
  Weight: 106.4 kg

DRUGS (2)
  1. GABAPENTIN. [Suspect]
     Active Substance: GABAPENTIN
     Indication: URINARY TRACT INFECTION
     Route: 048
     Dates: start: 20130612
  2. ACETAMINOPHEN/HYDROCODONE [Suspect]
     Active Substance: ACETAMINOPHEN\HYDROCODONE
     Indication: PAIN
     Route: 048
     Dates: start: 20140813

REACTIONS (12)
  - Eyelid disorder [None]
  - Hypoventilation [None]
  - Mental status changes [None]
  - Delirium [None]
  - Confusional state [None]
  - Balance disorder [None]
  - Gait disturbance [None]
  - Sedation [None]
  - Haemorrhage intracranial [None]
  - Somnolence [None]
  - Fall [None]
  - Insomnia [None]

NARRATIVE: CASE EVENT DATE: 20141101
